FAERS Safety Report 5195971-2 (Version None)
Quarter: 2006Q4

REPORT INFORMATION
  Report Type: 
  Country: None (occurrence: None)
  Receive Date: 20061227
  Receipt Date: 20061227
  Transmission Date: 20070319
  Serious: Yes (Other)
  Sender: FDA-Public Use
  Company Number: None

PATIENT
  Sex: Female

DRUGS (1)
  1. TOPAMAX [Suspect]
     Dosage: 100MG THREE TIMES DAILY PO
     Route: 048
     Dates: start: 20061025, end: 20061106

REACTIONS (2)
  - CARBON DIOXIDE DECREASED [None]
  - DIZZINESS POSTURAL [None]
